FAERS Safety Report 4380163-7 (Version None)
Quarter: 2004Q2

REPORT INFORMATION
  Report Type: 
  Country: None (occurrence: None)
  Receive Date: 20040614
  Receipt Date: 20040423
  Transmission Date: 20050107
  Serious: No
  Sender: FDA-Public Use
  Company Number: M04-341-125

PATIENT
  Age: 80 Year
  Sex: Male

DRUGS (1)
  1. VELCADE [Suspect]
     Indication: MULTIPLE MYELOMA
     Dosage: INTRAVENOUS
     Route: 042
     Dates: start: 20040210

REACTIONS (7)
  - ARTHRALGIA [None]
  - CONSTIPATION [None]
  - DECREASED APPETITE [None]
  - FATIGUE [None]
  - NAUSEA [None]
  - RENAL PAIN [None]
  - THROMBOCYTOPENIA [None]
